FAERS Safety Report 6974936-1 (Version None)
Quarter: 2010Q3

REPORT INFORMATION
  Report Type: 
  Country: None (occurrence: None)
  Receive Date: 20100909
  Receipt Date: 20090107
  Transmission Date: 20110219
  Serious: No
  Sender: FDA-Public Use
  Company Number: US-WYE-H07629709

PATIENT
  Age: 38 Year
  Sex: Female

DRUGS (1)
  1. PRISTIQ [Suspect]
     Indication: MAJOR DEPRESSION
     Route: 048
     Dates: start: 20081112, end: 20081113

REACTIONS (5)
  - ANXIETY [None]
  - DISORIENTATION [None]
  - INSOMNIA [None]
  - PANIC ATTACK [None]
  - TREMOR [None]
